APPROVED DRUG PRODUCT: GUANFACINE HYDROCHLORIDE
Active Ingredient: GUANFACINE HYDROCHLORIDE
Strength: EQ 2MG BASE
Dosage Form/Route: TABLET;ORAL
Application: A216762 | Product #002 | TE Code: BX
Applicant: RUBICON RESEARCH LTD
Approved: Oct 17, 2023 | RLD: No | RS: No | Type: RX